FAERS Safety Report 8001447-7 (Version None)
Quarter: 2011Q4

REPORT INFORMATION
  Report Type: 
  Country: None (occurrence: None)
  Receive Date: 20111222
  Receipt Date: 20111220
  Transmission Date: 20120403
  Serious: Yes (Other)
  Sender: FDA-Public Use
  Company Number: US-AMGEN-USACT2011019248

PATIENT
  Sex: Male

DRUGS (14)
  1. MOTRIN [Concomitant]
  2. CALTRATE D PLUS MINERALS [Concomitant]
  3. DENOSUMAB [Suspect]
     Indication: PROSTATE CANCER
     Dosage: 1 UNK, UNK
     Dates: start: 20080730
  4. IBUPROFEN (ADVIL) [Concomitant]
  5. OMEPRAZOLE [Concomitant]
  6. METOPROLOL TARTRATE [Concomitant]
  7. FIBER [Concomitant]
  8. ULTRAM [Concomitant]
  9. EPIPEN [Concomitant]
  10. FISH OIL [Concomitant]
  11. NILANDRON [Concomitant]
  12. VITAMIN C [Concomitant]
  13. CENTRUM SILVER [Concomitant]
  14. LOVAZA [Concomitant]

REACTIONS (1)
  - BONE DISORDER [None]
